FAERS Safety Report 6637284-5 (Version None)
Quarter: 2010Q1

REPORT INFORMATION
  Report Type: 
  Country: None (occurrence: None)
  Receive Date: 20100316
  Receipt Date: 20100209
  Transmission Date: 20100710
  Serious: No
  Sender: FDA-Public Use
  Company Number: US-ABBOTT-10P-163-0625995-00

PATIENT
  Sex: Female
  Weight: 79.45 kg

DRUGS (15)
  1. TRILIPIX [Suspect]
     Indication: BLOOD TRIGLYCERIDES INCREASED
     Dates: start: 20091101
  2. TRICOR [Suspect]
     Indication: BLOOD TRIGLYCERIDES INCREASED
     Dates: end: 20091101
  3. INSULIN [Suspect]
     Indication: DIABETES MELLITUS
  4. GLIPIZIDE [Concomitant]
     Indication: DIABETES MELLITUS
  5. JENUVIA [Concomitant]
     Indication: DIABETES MELLITUS
  6. ATENOLOL [Concomitant]
     Indication: HYPERTENSION
  7. DIOVAN HCT [Concomitant]
     Indication: HYPERTENSION
  8. DIOVAN HCT [Concomitant]
     Indication: FLUID RETENTION
  9. PAROXETINE HCL [Concomitant]
     Indication: NERVOUSNESS
  10. SIMVASTATIN [Concomitant]
     Indication: BLOOD CHOLESTEROL INCREASED
     Dosage: HELD FOR 2 DAYS
  11. NEXIUM [Concomitant]
     Indication: GASTRIC DISORDER
  12. DARVOCET [Concomitant]
     Indication: PAIN
  13. MAGNESIUM [Concomitant]
     Indication: MINERAL SUPPLEMENTATION
  14. CALCIUM [Concomitant]
     Indication: MINERAL SUPPLEMENTATION
  15. ZINC [Concomitant]
     Indication: MINERAL SUPPLEMENTATION

REACTIONS (4)
  - HYPOAESTHESIA [None]
  - INAPPROPRIATE SCHEDULE OF DRUG ADMINISTRATION [None]
  - PAIN [None]
  - PALPITATIONS [None]
